FAERS Safety Report 17865777 (Version 1)
Quarter: 2020Q2

REPORT INFORMATION
  Report Type: Report from Study
  Country: US (occurrence: US)
  Receive Date: 20200605
  Receipt Date: 20200605
  Transmission Date: 20200714
  Serious: Yes (Death)
  Sender: FDA-Public Use
  Company Number: US-PFIZER INC-2020217921

PATIENT
  Age: 53 Year

DRUGS (1)
  1. BLEOMYCIN SULFATE [Suspect]
     Active Substance: BLEOMYCIN SULFATE
     Indication: LYMPHOMA
     Dosage: 10 MG/M2, TWICE A WEEK (MONDAY AND THURSDAY)
     Route: 030

REACTIONS (1)
  - Pulmonary fibrosis [Fatal]
